FAERS Safety Report 14301793 (Version 1)
Quarter: 2017Q4

REPORT INFORMATION
  Report Type: Spontaneous
  Country: US (occurrence: US)
  Receive Date: 20171219
  Receipt Date: 20171219
  Transmission Date: 20180321
  Serious: No
  Sender: FDA-Public Use
  Company Number: US-SUPERNUS PHARMACEUTICALS, INC.-2016SUP00197

PATIENT
  Sex: Male

DRUGS (1)
  1. OXTELLAR XR [Suspect]
     Active Substance: OXCARBAZEPINE
     Indication: JOINT INJURY

REACTIONS (2)
  - Headache [Not Recovered/Not Resolved]
  - Off label use [Unknown]
